APPROVED DRUG PRODUCT: AMPICILLIN AND SULBACTAM
Active Ingredient: AMPICILLIN SODIUM; SULBACTAM SODIUM
Strength: EQ 1GM BASE/VIAL;EQ 500MG BASE/VIAL
Dosage Form/Route: INJECTABLE;INJECTION
Application: A090579 | Product #001
Applicant: ASTRAL STERITECH PVT LTD
Approved: Jan 8, 2016 | RLD: No | RS: No | Type: DISCN